FAERS Safety Report 10235013 (Version 1)
Quarter: 2014Q2

REPORT INFORMATION
  Report Type: Report from Study
  Country: US (occurrence: US)
  Receive Date: 20140613
  Receipt Date: 20140613
  Transmission Date: 20141212
  Serious: Yes (Hospitalization, Other)
  Sender: FDA-Public Use
  Company Number: PHEH2014US011679

PATIENT
  Sex: Male

DRUGS (1)
  1. EXJADE [Suspect]
     Indication: PLASMA CELL MYELOMA
     Dosage: 500 MG
     Route: 048
     Dates: start: 20130711

REACTIONS (1)
  - Pneumonia [Unknown]
